FAERS Safety Report 12218021 (Version 2)
Quarter: 2016Q4

REPORT INFORMATION
  Report Type: Spontaneous
  Country: ES (occurrence: ES)
  Receive Date: 20160329
  Receipt Date: 20161228
  Transmission Date: 20170207
  Serious: Yes (Death)
  Sender: FDA-Public Use
  Company Number: DE-ACTELION-A-US2016-133594

PATIENT
  Sex: Male

DRUGS (1)
  1. VENTAVIS [Suspect]
     Active Substance: ILOPROST
     Indication: PULMONARY HYPERTENSION
     Dosage: UNK
     Route: 055
     Dates: start: 201603, end: 201603

REACTIONS (4)
  - Drug administered to patient of inappropriate age [Unknown]
  - Bradycardia [Fatal]
  - Death [Fatal]
  - Bronchial hyperreactivity [Unknown]

NARRATIVE: CASE EVENT DATE: 201603
